FAERS Safety Report 7786688-6 (Version None)
Quarter: 2011Q3

REPORT INFORMATION
  Report Type: 
  Country: None (occurrence: None)
  Receive Date: 20110929
  Receipt Date: 20110926
  Transmission Date: 20111222
  Serious: Yes (Hospitalization)
  Sender: FDA-Public Use
  Company Number: TH-PFIZER INC-2011229022

PATIENT
  Age: 48 Year
  Sex: Female

DRUGS (5)
  1. SOLU-MEDROL [Suspect]
     Indication: SPINAL COLUMN STENOSIS
     Dosage: 40 MG, SINGLE
     Route: 008
     Dates: start: 20110926
  2. XYLOCAINE [Suspect]
     Indication: SPINAL COLUMN STENOSIS
     Dosage: 2%, 4ML, SINGLE
     Route: 008
     Dates: start: 20110926
  3. GABAPENTIN [Concomitant]
     Indication: PAIN
     Dosage: 400 MG, 1X/DAY
     Route: 048
  4. NAPROXEN [Concomitant]
     Indication: PAIN
     Dosage: 250 MG, 2X/DAY
     Route: 048
  5. NORGESIC TABLETS [Concomitant]
     Indication: PAIN
     Dosage: 1 TABLET, 3 TIMES A DAY
     Route: 048

REACTIONS (4)
  - HEADACHE [None]
  - BLOOD PRESSURE INCREASED [None]
  - NAUSEA [None]
  - URINARY INCONTINENCE [None]
